FAERS Safety Report 24914796 (Version 1)
Quarter: 2025Q1

REPORT INFORMATION
  Report Type: Spontaneous
  Country: CA (occurrence: CA)
  Receive Date: 20250203
  Receipt Date: 20250203
  Transmission Date: 20250409
  Serious: Yes (Hospitalization, Other)
  Sender: INTERCEPT PHARMACEUTICALS
  Company Number: CA-ADVANZ PHARMA-202408007031

PATIENT
  Sex: Female

DRUGS (7)
  1. OCALIVA [Suspect]
     Active Substance: OBETICHOLIC ACID
     Indication: Primary biliary cholangitis
     Route: 048
     Dates: start: 20230712
  2. URSODIOL [Concomitant]
     Active Substance: URSODIOL
  3. METFORMIN [Concomitant]
     Active Substance: METFORMIN HYDROCHLORIDE
  4. IRBESARTAN [Concomitant]
     Active Substance: IRBESARTAN
  5. AA FENO SUPER [Concomitant]
  6. OZEMPIC [Concomitant]
     Active Substance: SEMAGLUTIDE
     Indication: Diabetes mellitus
  7. CHOLESTYRAMINE [Concomitant]
     Active Substance: CHOLESTYRAMINE

REACTIONS (4)
  - Nephrolithiasis [Not Recovered/Not Resolved]
  - Weight decreased [Unknown]
  - Hepatic pain [Unknown]
  - Fatigue [Unknown]
